FAERS Safety Report 7581468-9 (Version None)
Quarter: 2011Q2

REPORT INFORMATION
  Report Type: 
  Country: None (occurrence: None)
  Receive Date: 20110629
  Receipt Date: 20110617
  Transmission Date: 20111010
  Serious: Yes (Hospitalization, Other)
  Sender: FDA-Public Use
  Company Number: PHHY2011US40354

PATIENT
  Sex: Female

DRUGS (3)
  1. BLOOD CELLS, PACKED HUMAN [Concomitant]
  2. EXJADE [Suspect]
     Dosage: 1500 MG, QD
     Route: 048
  3. CHEMOTHERAPEUTICS NOS [Concomitant]

REACTIONS (7)
  - NECK PAIN [None]
  - RASH GENERALISED [None]
  - GAIT DISTURBANCE [None]
  - URTICARIA [None]
  - CHEST PAIN [None]
  - PAIN IN EXTREMITY [None]
  - NERVOUSNESS [None]
